FAERS Safety Report 11944124 (Version 1)
Quarter: 2016Q1

REPORT INFORMATION
  Report Type: Spontaneous
  Country: US (occurrence: US)
  Receive Date: 20160125
  Receipt Date: 20160125
  Transmission Date: 20160526
  Serious: No
  Sender: FDA-Public Use
  Company Number: US-UNITED THERAPEUTICS-UNT-2015-004491

PATIENT
  Sex: Female
  Weight: 99.77 kg

DRUGS (4)
  1. REMODULIN [Suspect]
     Active Substance: TREPROSTINIL
     Dosage: 0.060 ?G/KG/MIN, CONTINUING
     Route: 058
     Dates: start: 20131031
  2. REMODULIN [Suspect]
     Active Substance: TREPROSTINIL
     Indication: PULMONARY ARTERIAL HYPERTENSION
     Dosage: 0.06 ?G/KG/MIN, CONTINUING
     Route: 058
     Dates: start: 20131021
  3. REMODULIN [Suspect]
     Active Substance: TREPROSTINIL
     Dosage: UNK
  4. LETAIRIS [Concomitant]
     Active Substance: AMBRISENTAN
     Indication: PRODUCT USED FOR UNKNOWN INDICATION

REACTIONS (10)
  - Infusion site infection [Unknown]
  - Ascites [Unknown]
  - Diarrhoea [Unknown]
  - Infusion site pain [Unknown]
  - Infusion site scar [Unknown]
  - Infusion site oedema [Recovering/Resolving]
  - Infusion site erythema [Recovering/Resolving]
  - Arthralgia [Recovered/Resolved]
  - Nausea [Unknown]
  - Pain in jaw [Recovered/Resolved]
